FAERS Safety Report 5919014-5 (Version None)
Quarter: 2008Q4

REPORT INFORMATION
  Report Type: 
  Country: None (occurrence: None)
  Receive Date: 20081014
  Receipt Date: 20081014
  Transmission Date: 20090506
  Serious: Yes (Other)
  Sender: FDA-Public Use
  Company Number: None

PATIENT
  Age: 4 Year
  Sex: Female
  Weight: 14.0615 kg

DRUGS (1)
  1. SINGULAIR [Suspect]
     Indication: MULTIPLE ALLERGIES
     Dosage: 1 POWDER PACKET 1X DAILY PO
     Route: 048
     Dates: start: 20060901, end: 20080301

REACTIONS (7)
  - ABDOMINAL PAIN UPPER [None]
  - ANGER [None]
  - BIPOLAR DISORDER [None]
  - CRYING [None]
  - HEADACHE [None]
  - MUSCLE SPASMS [None]
  - TIC [None]
